FAERS Safety Report 23614514 (Version 2)
Quarter: 2024Q2

REPORT INFORMATION
  Report Type: Spontaneous
  Country: IT (occurrence: IT)
  Receive Date: 20240311
  Receipt Date: 20240414
  Transmission Date: 20240716
  Serious: Yes (Other)
  Sender: FDA-Public Use
  Company Number: IT-BRISTOL-MYERS SQUIBB COMPANY-2024-000614

PATIENT
  Age: 58 Year
  Sex: Male
  Weight: 72 kg

DRUGS (8)
  1. CARBOPLATIN [Suspect]
     Active Substance: CARBOPLATIN
     Indication: Product used for unknown indication
     Dosage: UNK
     Route: 065
     Dates: start: 20231207
  2. PACLITAXEL [Suspect]
     Active Substance: PACLITAXEL
     Indication: Non-small cell lung cancer metastatic
     Dosage: UNK
     Route: 065
     Dates: start: 20231207
  3. NIVOLUMAB [Suspect]
     Active Substance: NIVOLUMAB
     Indication: Non-small cell lung cancer metastatic
     Dosage: 240 MILLIGRAM, ONCE A DAY
     Route: 042
     Dates: start: 20231207
  4. NIVOLUMAB [Suspect]
     Active Substance: NIVOLUMAB
     Dosage: 360 MILLIGRAM 3 WEEK ONCE A DAY (21, FREQUENCY: EACH 3 WEEKS)
     Route: 042
     Dates: start: 20231229
  5. IPILIMUMAB [Suspect]
     Active Substance: IPILIMUMAB
     Indication: Product used for unknown indication
     Dosage: 70 MILLIGRAM, ONCE A DAY (6 WEEK)
     Route: 042
     Dates: start: 20231229
  6. FOSTERA [Concomitant]
     Indication: Chronic obstructive pulmonary disease
     Dosage: 1111 MICROGRAM (2 DIE  )
     Dates: start: 19000101
  7. ASPIRIN DL-LYSINE [Concomitant]
     Active Substance: ASPIRIN DL-LYSINE
     Indication: Product used for unknown indication
     Dosage: 1111 MILLIGRAM (POLV 30BUST 75 MG)
     Route: 055
     Dates: start: 19000101
  8. ISOPTIN [Concomitant]
     Active Substance: VERAPAMIL HYDROCHLORIDE
     Indication: Product used for unknown indication
     Dosage: 1111 MILLIGRAM (30 PCR, 240 MG R.P.)
     Route: 048
     Dates: start: 19000101

REACTIONS (2)
  - Pneumonitis [Recovered/Resolved]
  - Asthenia [Recovered/Resolved]

NARRATIVE: CASE EVENT DATE: 20231227
